FAERS Safety Report 8223461-9 (Version None)
Quarter: 2012Q1

REPORT INFORMATION
  Report Type: 
  Country: None (occurrence: None)
  Receive Date: 20120316
  Receipt Date: 20120223
  Transmission Date: 20120608
  Serious: Yes (Hospitalization)
  Sender: FDA-Public Use
  Company Number: DKLU1077551

PATIENT
  Age: 29 Year
  Sex: Male

DRUGS (9)
  1. TRANXENE [Suspect]
     Indication: PRODUCT USED FOR UNKNOWN INDICATION
     Dosage: 20 MG MILLIGRAM(S), 4 IN 1 D), ORAL
     Route: 048
     Dates: start: 20111223
  2. LEVOMEPROMAZINE (LEVOMEPROMAZINE) (30 GTT, DROPS) [Suspect]
     Indication: CHILDHOOD PSYCHOSIS
     Dosage: 30 GTT DROP(S), 2 IN 1 D, ORAL
     Route: 048
     Dates: start: 20111101
  3. ZUCLOPENTHIXOL ACETATE (ZUCLOPENTHIXOL ACETATE) (300 MG) [Suspect]
     Dosage: 300 MG MILLIGRAM(S), 1 IN 2 WK, INTRAMUSCULAR,  300 MG MILLIGRAM(S), 1 IN 2 WK, INTRAMUSCULAR,
     Dates: start: 20091101
  4. ZUCLOPENTHIXOL ACETATE (ZUCLOPENTHIXOL ACETATE) (300 MG) [Suspect]
     Dosage: 300 MG MILLIGRAM(S), 1 IN 2 WK, INTRAMUSCULAR,  300 MG MILLIGRAM(S), 1 IN 2 WK, INTRAMUSCULAR,
     Dates: start: 20090701
  5. LOXAPINE [Concomitant]
  6. CYAMEMAZINE TARTRATE [Concomitant]
  7. TROPATEPINE HYDROCHLORIDE (TROPATEPINE HYDROCHLORIDE) (5 MG/ML) [Suspect]
     Indication: PRODUCT USED FOR UNKNOWN INDICATION
     Dosage: 1 DF DOSAGE FORM, 3 IN 1 D, INTRAMUSCULAR, 1 DF DOSAGE FORM, 3 IN 1 D, INTRAMUSCULAR,
     Dates: start: 20060701
  8. ALIMEMAZINE TARTRATE (ALIMEMAZINE TARTRATE) (30 GTT, DROPS) [Suspect]
     Indication: CHILDHOOD PSYCHOSIS
     Dosage: 30 GTT DROP(S), 1 IN 1 D, ORAL
     Route: 048
     Dates: start: 20111101
  9. ALIMEMAZINE TARTRATE (ALIMEMAZINE TARTRATE) (30 GTT, DROPS) [Suspect]
     Indication: CHILDHOOD PSYCHOSIS
     Dosage: 30 GTT DROP(S), 1 IN 1 D, ORAL
     Route: 048
     Dates: start: 20060701

REACTIONS (16)
  - GAIT DISTURBANCE [None]
  - ALTERED STATE OF CONSCIOUSNESS [None]
  - RHABDOMYOLYSIS [None]
  - MUSCLE RIGIDITY [None]
  - PYREXIA [None]
  - CONFUSIONAL STATE [None]
  - OVERDOSE [None]
  - HYPOTENSION [None]
  - LUNG DISORDER [None]
  - LEUKOCYTOSIS [None]
  - RENAL FAILURE ACUTE [None]
  - TACHYCARDIA [None]
  - SOMNOLENCE [None]
  - SCHIZOPHRENIA, PARANOID TYPE [None]
  - HAEMATOMA [None]
  - INFLAMMATION [None]
